FAERS Safety Report 8208598-2 (Version None)
Quarter: 2012Q1

REPORT INFORMATION
  Report Type: 
  Country: None (occurrence: None)
  Receive Date: 20120314
  Receipt Date: 20120305
  Transmission Date: 20120608
  Serious: Yes (Other)
  Sender: FDA-Public Use
  Company Number: MY-GLAXOSMITHKLINE-B0786984A

PATIENT
  Sex: Male
  Weight: 3.6 kg

DRUGS (2)
  1. VALPROIC ACID [Concomitant]
     Indication: JUVENILE MYOCLONIC EPILEPSY
     Route: 064
  2. LAMICTAL [Suspect]
     Indication: SCHIZOPHRENIA
     Dosage: 150MG PER DAY
     Route: 064

REACTIONS (10)
  - CEREBRAL INFARCTION [None]
  - FOETAL EXPOSURE DURING PREGNANCY [None]
  - PARTIAL SEIZURES [None]
  - INTRAVENTRICULAR HAEMORRHAGE NEONATAL [None]
  - CEREBRAL ISCHAEMIA [None]
  - CONVULSION [None]
  - SUBDURAL HAEMORRHAGE NEONATAL [None]
  - SUBARACHNOID HAEMORRHAGE NEONATAL [None]
  - CEPHALHAEMATOMA [None]
  - BRAIN OEDEMA [None]
